FAERS Safety Report 6268641-7 (Version None)
Quarter: 2009Q3

REPORT INFORMATION
  Report Type: 
  Country: None (occurrence: None)
  Receive Date: 20090713
  Receipt Date: 20090713
  Transmission Date: 20100115
  Serious: No
  Sender: FDA-Public Use
  Company Number: None

PATIENT
  Age: 25 Year
  Sex: Female
  Weight: 66.6788 kg

DRUGS (2)
  1. ZICAM COLD REMEDY NASAL SWABS MATRIXX INITIATIVES [Suspect]
     Indication: NASOPHARYNGITIS
     Dosage: NASAL
     Route: 045
     Dates: start: 20080701, end: 20090331
  2. ZICAM EXTREME CONGESTION SPRAY MATRIXX INITIATIVES [Suspect]
     Indication: SINUSITIS
     Dosage: NASAL
     Route: 045
     Dates: start: 20090201, end: 20090331

REACTIONS (1)
  - PAROSMIA [None]
